FAERS Safety Report 5693743-3 (Version None)
Quarter: 2008Q2

REPORT INFORMATION
  Report Type: 
  Country: None (occurrence: None)
  Receive Date: 20080403
  Receipt Date: 20080326
  Transmission Date: 20081010
  Serious: Yes (Other)
  Sender: FDA-Public Use
  Company Number: JP-ABBOTT-08P-087-0444538-00

PATIENT
  Sex: Male

DRUGS (11)
  1. TRICOR [Suspect]
     Indication: HYPERTRIGLYCERIDAEMIA
     Route: 048
     Dates: start: 20050602, end: 20050629
  2. TRICOR [Suspect]
     Route: 048
     Dates: start: 20050630, end: 20070131
  3. TRICOR [Suspect]
     Route: 048
     Dates: start: 20070201
  4. BLOPRESS [Suspect]
     Indication: HYPERTENSION
     Route: 048
     Dates: start: 20040715, end: 20050302
  5. BLOPRESS [Suspect]
     Route: 048
     Dates: start: 20050303, end: 20061108
  6. BLOPRESS [Suspect]
     Route: 048
     Dates: start: 20061109, end: 20070307
  7. LANSOPRAZOLE [Concomitant]
     Indication: REFLUX OESOPHAGITIS
     Route: 048
     Dates: start: 20060427, end: 20060601
  8. FENOFIBRATE [Concomitant]
     Indication: HYPERTRIGLYCERIDAEMIA
     Route: 048
     Dates: start: 20040909, end: 20050601
  9. URALYT [Concomitant]
     Indication: HYPERURICAEMIA
     Route: 048
     Dates: start: 20040715, end: 20061012
  10. CARBAMAZEPINE [Concomitant]
     Indication: TRIGEMINAL NEURALGIA
     Route: 048
     Dates: start: 20050303, end: 20050811
  11. BEZAFIBRATE [Concomitant]
     Indication: DRUG USE FOR UNKNOWN INDICATION
     Route: 048
     Dates: start: 20040415, end: 20040908

REACTIONS (2)
  - INTERSTITIAL LUNG DISEASE [None]
  - NASOPHARYNGITIS [None]
